FAERS Safety Report 25674894 (Version 3)
Quarter: 2025Q4

REPORT INFORMATION
  Report Type: Spontaneous
  Country: EU (occurrence: EU)
  Receive Date: 20250813
  Receipt Date: 20251113
  Transmission Date: 20260117
  Serious: Yes (Hospitalization, Other)
  Sender: AUROBINDO
  Company Number: EU-ROCHE-10000341256

PATIENT
  Age: 53 Year
  Sex: Female
  Weight: 61 kg

DRUGS (14)
  1. DOXORUBICIN [Suspect]
     Active Substance: DOXORUBICIN
     Indication: Breast cancer
     Dosage: 108 MILLIGRAM (LAST DOSE ADMINISTERED BEFORE SAE, C5D1)
     Route: 042
     Dates: start: 20250703
  2. DOXORUBICIN [Suspect]
     Active Substance: DOXORUBICIN
     Indication: Triple negative breast cancer
     Dosage: 345 MILLIGRAM (LAST DOSE ADMINISTERED BEFORE SAE, 03-JUL-2025 C5D1LAST DOSE ADMINISTERED BEFORE SAE
     Route: 042
     Dates: start: 20250703
  3. CARBOPLATIN [Suspect]
     Active Substance: CARBOPLATIN
     Indication: Breast cancer
     Dosage: 6432 MILLIGRAM (LAST DOSE ADMINISTERED BEFORE SAE 13-JUN-2025, 536 MG, C1D1)
     Route: 042
     Dates: start: 20250327
  4. CARBOPLATIN [Suspect]
     Active Substance: CARBOPLATIN
     Indication: Triple negative breast cancer
     Dosage: 1925 MILLIGRAM (LAST DOSE ADMINISTERED BEFORE SAE 13-JUN-2025, 366 MG, C1D1)
     Route: 042
     Dates: start: 20250327
  5. TIRAGOLUMAB [Suspect]
     Active Substance: TIRAGOLUMAB
     Indication: Breast cancer
     Dosage: 6000 MILLIGRAM (LAST DOSE ADMINISTERED BEFORE SAE 03-JUL-2025, 1200 MG C1D1)
     Route: 042
     Dates: start: 20250327
  6. TIRAGOLUMAB [Suspect]
     Active Substance: TIRAGOLUMAB
     Indication: Triple negative breast cancer
     Dosage: 4800 MILLIGRAM (LAST DOSE ADMINISTERED BEFORE SAE 03-JUL-2025, 1200 MG C1D1LAST DOSE ADMINISTERED BE
     Route: 042
     Dates: start: 20250327
  7. ATEZOLIZUMAB [Suspect]
     Active Substance: ATEZOLIZUMAB
     Indication: Breast cancer
     Dosage: 3000 MILLIGRAM (LAST DOSE ADMINISTERED BEFORE SAE 03-JUL-2025, 600 MG, C1D1)
     Route: 042
     Dates: start: 20250327
  8. ATEZOLIZUMAB [Suspect]
     Active Substance: ATEZOLIZUMAB
     Indication: Triple negative breast cancer
     Dosage: 9600 MILLIGRAM (LAST DOSE ADMINISTERED BEFORE SAE 03-JUL-2025, 600 MG, C1D1LAST DOSE ADMINISTERED BE
     Route: 042
     Dates: start: 20250327
  9. PACLITAXEL [Suspect]
     Active Substance: PACLITAXEL
     Indication: Breast cancer
     Dosage: 720 MILLIGRAM (LAST DOSE ADMINISTERED BEFORE SAE 26-JUN-2025, 180 MG, C1D1)
     Route: 042
     Dates: start: 20250327
  10. PACLITAXEL [Suspect]
     Active Substance: PACLITAXEL
     Indication: Triple negative breast cancer
  11. CYCLOPHOSPHAMIDE [Suspect]
     Active Substance: CYCLOPHOSPHAMIDE
     Indication: Breast cancer
     Dosage: 1100 MILLIGRAM (LAST DOSE ADMINISTERED BEFORE SAE, C5D1)
     Route: 042
     Dates: start: 20250703
  12. CYCLOPHOSPHAMIDE [Suspect]
     Active Substance: CYCLOPHOSPHAMIDE
     Indication: Triple negative breast cancer
     Dosage: 3466 MILLIGRAM (LAST DOSE ADMINISTERED BEFORE SAE, 03-JUL-2025 C5D1LAST DOSE ADMINISTERED BEFORE SAE
     Route: 042
     Dates: start: 20250703
  13. PEGFILGRASTIM [Concomitant]
     Active Substance: PEGFILGRASTIM
     Indication: Product used for unknown indication
     Dosage: 6 MILLIGRAM
     Route: 058
     Dates: start: 20250704, end: 20250704
  14. AMOXICILLIN\CLAVULANIC ACID [Concomitant]
     Active Substance: AMOXICILLIN\CLAVULANIC ACID
     Indication: Sialoadenitis
     Dosage: 500 MILLIGRAM
     Route: 048
     Dates: start: 20250713

REACTIONS (2)
  - Febrile neutropenia [Recovered/Resolved]
  - Immune-mediated myocarditis [Not Recovered/Not Resolved]

NARRATIVE: CASE EVENT DATE: 20250712
